FAERS Safety Report 6414013-1 (Version None)
Quarter: 2009Q4

REPORT INFORMATION
  Report Type: 
  Country: None (occurrence: None)
  Receive Date: 20091026
  Receipt Date: 20091013
  Transmission Date: 20100525
  Serious: Yes (Other)
  Sender: FDA-Public Use
  Company Number: PHEH2009US13677

PATIENT
  Sex: Male

DRUGS (3)
  1. DIOVAN HCT [Suspect]
     Dosage: UNK
  2. NORVASC [Interacting]
     Dosage: 5 MG, UNK
  3. JANUMET [Interacting]
     Dosage: 50/500 MG, UNK

REACTIONS (6)
  - DIABETES MELLITUS [None]
  - DIABETIC RETINOPATHY [None]
  - DRUG INTERACTION [None]
  - GLAUCOMA [None]
  - MICROALBUMINURIA [None]
  - RENAL DISORDER [None]
